FAERS Safety Report 12215677 (Version 1)
Quarter: 2016Q1

REPORT INFORMATION
  Report Type: Report from Study
  Country: RO (occurrence: RO)
  Receive Date: 20160328
  Receipt Date: 20160328
  Transmission Date: 20160526
  Serious: Yes (Life-Threatening, Hospitalization, Other)
  Sender: FDA-Public Use
  Company Number: RO-KADMON PHARMACEUTICALS, LLC-KAD201603-001166

PATIENT
  Age: 64 Year
  Sex: Male
  Weight: 90 kg

DRUGS (8)
  1. VIEKIRAX [Suspect]
     Active Substance: OMBITASVIR\PARITAPREVIR\RITONAVIR
     Indication: HEPATITIS C
  2. EXVIERA [Suspect]
     Active Substance: DASABUVIR
     Indication: HEPATIC CIRRHOSIS
     Dosage: TABLET
     Route: 048
     Dates: start: 20160209, end: 20160309
  3. EXVIERA [Suspect]
     Active Substance: DASABUVIR
     Indication: HEPATITIS C
  4. INSULIN [Concomitant]
     Active Substance: INSULIN NOS
     Indication: TYPE 2 DIABETES MELLITUS
     Dosage: 34 UNITS RI-RAPID INSULIN, 28 RI-28 RI; 30 UNITS BASAL INSULIN 0-40 BI
     Route: 058
     Dates: start: 1993
  5. RIBAVIRIN. [Suspect]
     Active Substance: RIBAVIRIN
     Indication: HEPATIC CIRRHOSIS
     Dosage: TABLET
     Route: 048
     Dates: start: 20160209
  6. THIOSSEN 600 MG, TABLET [Concomitant]
     Indication: DIABETIC NEUROPATHY
     Route: 048
  7. RIBAVIRIN. [Suspect]
     Active Substance: RIBAVIRIN
     Indication: HEPATITIS C
  8. VIEKIRAX [Suspect]
     Active Substance: OMBITASVIR\PARITAPREVIR\RITONAVIR
     Indication: HEPATIC CIRRHOSIS
     Dosage: TABLET
     Route: 048
     Dates: start: 20160209, end: 20160309

REACTIONS (7)
  - Haematemesis [Unknown]
  - Hepatic failure [Unknown]
  - Hepatic encephalopathy [Recovering/Resolving]
  - Melaena [Unknown]
  - Upper gastrointestinal haemorrhage [Recovering/Resolving]
  - Anaemia [Unknown]
  - Oesophageal varices haemorrhage [Unknown]

NARRATIVE: CASE EVENT DATE: 201603
